FAERS Safety Report 7010160-4 (Version None)
Quarter: 2010Q3

REPORT INFORMATION
  Report Type: 
  Country: None (occurrence: None)
  Receive Date: 20100923
  Receipt Date: 20100917
  Transmission Date: 20110219
  Serious: Yes (Hospitalization)
  Sender: FDA-Public Use
  Company Number: US-PFIZER INC-2010118611

PATIENT
  Sex: Male
  Weight: 81.63 kg

DRUGS (3)
  1. CELEBREX [Suspect]
     Dosage: 100 MG, DAILY
     Dates: end: 20091008
  2. ACETYLSALICYLIC ACID [Suspect]
     Indication: CARDIAC DISORDER
     Dosage: 81 MG, DAILY
     Dates: end: 20091008
  3. PLAVIX [Suspect]
     Indication: POOR PERIPHERAL CIRCULATION
     Dosage: 75 MG, DAILY
     Route: 048
     Dates: end: 20091008

REACTIONS (4)
  - ANAEMIA [None]
  - DUODENAL ULCER HAEMORRHAGE [None]
  - HYPOTENSION [None]
  - SYNCOPE [None]
